FAERS Safety Report 10507887 (Version 1)
Quarter: 2014Q4

REPORT INFORMATION
  Report Type: Spontaneous
  Country: FR (occurrence: FR)
  Receive Date: 20141009
  Receipt Date: 20141009
  Transmission Date: 20150528
  Serious: Yes (Hospitalization)
  Sender: FDA-Public Use
  Company Number: PHHY2014FR131242

PATIENT
  Sex: Male

DRUGS (10)
  1. ZIDOVUDINE. [Suspect]
     Active Substance: ZIDOVUDINE
     Dosage: 6.3 MG (2 MG/KG, QID)
  2. RALTEGRAVIR [Suspect]
     Active Substance: RALTEGRAVIR
     Dosage: (MATERNAL DOSE 400 MG ONE TABLET TWICE DAILY)
     Route: 064
  3. COMBIVIR [Suspect]
     Active Substance: LAMIVUDINE\ZIDOVUDINE
     Dosage: (MATERNAL DOSE 150/300 MG 1 DF TWICE DAILY)
     Route: 064
  4. NELFINAVIR [Suspect]
     Active Substance: NELFINAVIR
     Indication: ANTIVIRAL PROPHYLAXIS
     Dosage: 40 MG/KG, BID
  5. KALETRA [Suspect]
     Active Substance: LOPINAVIR\RITONAVIR
     Dosage: (MATERNAL DOSE 200/50 MG TWO TABLETS TWICE DAILY)
     Route: 064
  6. NEVIRAPINE. [Suspect]
     Active Substance: NEVIRAPINE
     Indication: ANTIVIRAL PROPHYLAXIS
     Dosage: 2 MG/KG, UNK
     Route: 048
  7. ZIDOVUDINE. [Suspect]
     Active Substance: ZIDOVUDINE
     Dosage: MATERNAL DOSE 2 MG/KG IV BOLUS
     Route: 064
  8. SULFAMETHOXAZOLE AND TRIMETHOPRIM [Suspect]
     Active Substance: SULFAMETHOXAZOLE\TRIMETHOPRIM
     Dosage: (MATERNAL DOSE 160/800 MG ONE TABLET THREE TIMES WEEKLY)
     Route: 064
  9. LAMIVUDINE. [Suspect]
     Active Substance: LAMIVUDINE
     Dosage: 2 MG/KG, BID
     Route: 064
  10. ZIDOVUDINE. [Suspect]
     Active Substance: ZIDOVUDINE
     Dosage: MATERNAL DOSE 1 MG/KG/HOUR
     Route: 064

REACTIONS (5)
  - Blood urea decreased [Unknown]
  - White blood cell count decreased [Unknown]
  - Blood uric acid increased [Unknown]
  - Neutrophil count decreased [Unknown]
  - Foetal exposure during pregnancy [Unknown]
